FAERS Safety Report 21935258 (Version 1)
Quarter: 2023Q1

REPORT INFORMATION
  Report Type: Spontaneous
  Country: US (occurrence: None)
  Receive Date: 20230131
  Receipt Date: 20230131
  Transmission Date: 20230417
  Serious: No
  Sender: FDA-Public Use
  Company Number: None

PATIENT
  Age: 72 Year
  Sex: Male
  Weight: 100.24 kg

DRUGS (2)
  1. EZETIMIBE [Suspect]
     Active Substance: EZETIMIBE
     Indication: Hyperlipidaemia
     Dosage: FREQUENCY : DAILY;?
     Route: 048
     Dates: start: 20220727, end: 20220812
  2. OZEMPIC [Suspect]
     Active Substance: SEMAGLUTIDE

REACTIONS (5)
  - Periorbital swelling [None]
  - Peripheral swelling [None]
  - Fatigue [None]
  - Constipation [None]
  - Abdominal discomfort [None]

NARRATIVE: CASE EVENT DATE: 20220810
